FAERS Safety Report 20486700 (Version 2)
Quarter: 2022Q3

REPORT INFORMATION
  Report Type: Spontaneous
  Country: US (occurrence: US)
  Receive Date: 20220217
  Receipt Date: 20220727
  Transmission Date: 20221027
  Serious: Yes (Hospitalization, Other)
  Sender: FDA-Public Use
  Company Number: US-GILEAD-2022-0569398

PATIENT
  Age: 48 Year
  Sex: Male
  Weight: 92.063 kg

DRUGS (62)
  1. VIREAD [Suspect]
     Active Substance: TENOFOVIR DISOPROXIL FUMARATE
     Indication: HIV infection
     Dosage: UNK
     Route: 048
     Dates: start: 2002
  2. VIREAD [Suspect]
     Active Substance: TENOFOVIR DISOPROXIL FUMARATE
     Dosage: UNK
     Route: 048
     Dates: start: 2001, end: 200811
  3. ATRIPLA [Suspect]
     Active Substance: EFAVIRENZ\EMTRICITABINE\TENOFOVIR DISOPROXIL FUMARATE
     Indication: HIV infection
     Dosage: UNK
     Route: 048
     Dates: start: 2002
  4. ATRIPLA [Suspect]
     Active Substance: EFAVIRENZ\EMTRICITABINE\TENOFOVIR DISOPROXIL FUMARATE
     Dosage: UNK
     Route: 048
     Dates: start: 2013, end: 201809
  5. TRUVADA [Suspect]
     Active Substance: EMTRICITABINE\TENOFOVIR DISOPROXIL FUMARATE
     Indication: HIV infection
     Dosage: UNK
     Route: 065
     Dates: start: 200811, end: 200907
  6. GENVOYA [Concomitant]
     Active Substance: COBICISTAT\ELVITEGRAVIR\EMTRICITABINE\TENOFOVIR ALAFENAMIDE FUMARATE
  7. EPIVIR [Concomitant]
     Active Substance: LAMIVUDINE
  8. NORVIR [Concomitant]
     Active Substance: RITONAVIR
  9. VIRAMUNE [Concomitant]
     Active Substance: NEVIRAPINE
  10. MIRTAZAPINE [Concomitant]
     Active Substance: MIRTAZAPINE
  11. ONDANSETRON [Concomitant]
     Active Substance: ONDANSETRON
  12. CEFPODOXIME [Concomitant]
     Active Substance: CEFPODOXIME
  13. AFLURIA NOS [Concomitant]
     Active Substance: INFLUENZA VIRUS VACCINE TRIVALENT TYPE A+B AFLURIA
  14. HYDROCODONE [Concomitant]
     Active Substance: HYDROCODONE
  15. TRIAMCINOLONE [Concomitant]
     Active Substance: TRIAMCINOLONE
  16. DOXYCYCLINE [Concomitant]
     Active Substance: DOXYCYCLINE
  17. CIPROFLOXACIN [Concomitant]
     Active Substance: CIPROFLOXACIN
  18. TAMSULOSIN [Concomitant]
     Active Substance: TAMSULOSIN
  19. AZITHROMYCIN [Concomitant]
     Active Substance: AZITHROMYCIN
  20. METFORMIN [Concomitant]
     Active Substance: METFORMIN HYDROCHLORIDE
  21. ANORO ELLIPTA [Concomitant]
     Active Substance: UMECLIDINIUM BROMIDE\VILANTEROL TRIFENATATE
  22. INCRUSE ELLIPTA [Concomitant]
     Active Substance: UMECLIDINIUM BROMIDE
  23. ALBUTEROL SULFATE [Concomitant]
     Active Substance: ALBUTEROL SULFATE
  24. METOPROLOL [Concomitant]
     Active Substance: METOPROLOL
  25. PANTOPRAZOLE [Concomitant]
     Active Substance: PANTOPRAZOLE
  26. BASAGLAR [Concomitant]
     Active Substance: INSULIN GLARGINE
  27. CRESTOR [Concomitant]
     Active Substance: ROSUVASTATIN CALCIUM
  28. GABAPENTIN [Concomitant]
     Active Substance: GABAPENTIN
  29. ENALAPRIL [Concomitant]
     Active Substance: ENALAPRIL
  30. HYDROCHLOROTHIAZIDE [Concomitant]
     Active Substance: HYDROCHLOROTHIAZIDE
  31. VITAMINS NOS [Concomitant]
     Active Substance: VITAMINS
  32. KETOROLAC [Concomitant]
     Active Substance: KETOROLAC TROMETHAMINE
  33. MOXIFLOXACIN [Concomitant]
     Active Substance: MOXIFLOXACIN
  34. LORAZEPAM [Concomitant]
     Active Substance: LORAZEPAM
  35. LOMOTIL [Concomitant]
     Active Substance: ATROPINE SULFATE\DIPHENOXYLATE HYDROCHLORIDE
  36. ASPIRIN [Concomitant]
     Active Substance: ASPIRIN
  37. FAMOTIDINE [Concomitant]
     Active Substance: FAMOTIDINE
  38. CLONIDINE [Concomitant]
     Active Substance: CLONIDINE
  39. HYDROXYZINE [Concomitant]
     Active Substance: HYDROXYZINE HYDROCHLORIDE
  40. ZOLPIDEM [Concomitant]
     Active Substance: ZOLPIDEM TARTRATE
  41. LEVOFLOXACIN [Concomitant]
     Active Substance: LEVOFLOXACIN
  42. LEXAPRO [Concomitant]
     Active Substance: ESCITALOPRAM OXALATE
  43. ADDERALL [Concomitant]
     Active Substance: AMPHETAMINE ASPARTATE\AMPHETAMINE SULFATE\DEXTROAMPHETAMINE SACCHARATE\DEXTROAMPHETAMINE SULFATE
  44. ZYPREXA [Concomitant]
     Active Substance: OLANZAPINE
  45. XANAX [Concomitant]
     Active Substance: ALPRAZOLAM
  46. BUSPAR [Concomitant]
     Active Substance: BUSPIRONE HYDROCHLORIDE
  47. PRAVASTATIN [Concomitant]
     Active Substance: PRAVASTATIN
  48. FENTANYL [Concomitant]
     Active Substance: FENTANYL
  49. MIDAZOLAM [Concomitant]
     Active Substance: MIDAZOLAM
  50. ISOVUE [Concomitant]
     Active Substance: IOPAMIDOL
  51. VICODIN [Concomitant]
     Active Substance: ACETAMINOPHEN\HYDROCODONE BITARTRATE
  52. BACTRIM [Concomitant]
     Active Substance: SULFAMETHOXAZOLE\TRIMETHOPRIM
  53. TYLENOL [Concomitant]
     Active Substance: ACETAMINOPHEN
  54. NASACORT [Concomitant]
     Active Substance: TRIAMCINOLONE ACETONIDE
  55. SEROQUEL [Concomitant]
     Active Substance: QUETIAPINE FUMARATE
  56. WELLBUTRIN [Concomitant]
     Active Substance: BUPROPION HYDROCHLORIDE
  57. NITROGLYCERIN [Concomitant]
     Active Substance: NITROGLYCERIN
  58. HEPARIN [Concomitant]
     Active Substance: HEPARIN SODIUM
  59. SODIUM CHLORIDE [Concomitant]
     Active Substance: SODIUM CHLORIDE
  60. NICODERM CQ [Concomitant]
     Active Substance: NICOTINE
  61. MORPHINE [Concomitant]
     Active Substance: MORPHINE
  62. EFFIENT [Concomitant]
     Active Substance: PRASUGREL HYDROCHLORIDE

REACTIONS (21)
  - Acute kidney injury [Recovered/Resolved]
  - Osteopenia [Not Recovered/Not Resolved]
  - Bone demineralisation [Unknown]
  - Rib fracture [Not Recovered/Not Resolved]
  - Pain [Not Recovered/Not Resolved]
  - Emotional distress [Not Recovered/Not Resolved]
  - Anxiety [Not Recovered/Not Resolved]
  - Anhedonia [Not Recovered/Not Resolved]
  - Ankle fracture [Not Recovered/Not Resolved]
  - Bone pain [Unknown]
  - Crepitations [Unknown]
  - Gait disturbance [Unknown]
  - Musculoskeletal chest pain [Unknown]
  - Hypoaesthesia [Unknown]
  - Wrist fracture [Not Recovered/Not Resolved]
  - Arthralgia [Unknown]
  - Impaired healing [Unknown]
  - Nightmare [Unknown]
  - Social anxiety disorder [Unknown]
  - General physical health deterioration [Unknown]
  - Fatigue [Unknown]

NARRATIVE: CASE EVENT DATE: 20130601
